FAERS Safety Report 7792126-X (Version None)
Quarter: 2011Q4

REPORT INFORMATION
  Report Type: 
  Country: None (occurrence: None)
  Receive Date: 20111003
  Receipt Date: 20110923
  Transmission Date: 20120403
  Serious: Yes (Other)
  Sender: FDA-Public Use
  Company Number: TW-ROCHE-672441

PATIENT
  Sex: Male
  Weight: 69 kg

DRUGS (7)
  1. AVASTIN [Suspect]
     Route: 042
  2. ROFERON-A [Suspect]
     Dosage: DOSE: 9 MU
     Route: 058
  3. AVASTIN [Suspect]
     Indication: RENAL CELL CARCINOMA
     Route: 042
     Dates: start: 20081113, end: 20091128
  4. ROFERON-A [Suspect]
     Indication: RENAL CELL CARCINOMA
     Dosage: DOSE: 9 MU
     Route: 058
     Dates: start: 20081113, end: 20091128
  5. UNKNOWN MEDICATION [Concomitant]
     Indication: COUGH
     Dates: start: 20091217, end: 20091221
  6. AMLODIPINE [Concomitant]
     Indication: HYPERTENSION
  7. ACETAMINOPHEN [Concomitant]
     Indication: PROPHYLAXIS

REACTIONS (1)
  - HAEMOPTYSIS [None]
